FAERS Safety Report 9791464 (Version 1)
Quarter: 2014Q1

REPORT INFORMATION
  Report Type: Report from Study
  Country: BR (occurrence: BR)
  Receive Date: 20140101
  Receipt Date: 20140101
  Transmission Date: 20141002
  Serious: Yes (Other)
  Sender: FDA-Public Use
  Company Number: PHHY2013BR153605

PATIENT
  Sex: Male
  Weight: 65 kg

DRUGS (9)
  1. EXELON PATCH [Suspect]
     Indication: PARKINSON^S DISEASE
     Dosage: 4.6 MG, QD (ONE 5 CM2 PATCH, ONCE PER DAY)
     Route: 062
     Dates: start: 20131026, end: 20131210
  2. EXELON PATCH [Suspect]
     Dosage: 9.5 MG, QD (ONE 10 CM2 PATCH, ONCE/DAY)
     Route: 062
     Dates: start: 20131211
  3. EPEZ [Suspect]
     Indication: PARKINSON^S DISEASE
     Dosage: UNK UKN, UNK
     Dates: start: 201310
  4. LOSARTAN [Concomitant]
     Indication: BLOOD PRESSURE ABNORMAL
     Dosage: UNK UKN, UNK
  5. ALPRAZOLAM [Concomitant]
     Indication: ANXIETY
     Dosage: UNK UKN, UNK
  6. PRAMIPEZAN [Concomitant]
     Indication: PARKINSON^S DISEASE
     Dosage: UNK UKN, UNK
  7. ALCYTAM [Concomitant]
     Indication: DEPRESSION
     Dosage: UNK UKN, UNK
  8. RIVOTRIL [Concomitant]
     Indication: ANXIETY
     Dosage: UNK UKN, UNK
  9. QUEROK [Concomitant]
     Indication: PARKINSON^S DISEASE
     Dosage: UNK UKN, UNK

REACTIONS (8)
  - Blood pressure abnormal [Unknown]
  - Dry skin [Unknown]
  - Rash [Unknown]
  - Feeling abnormal [Unknown]
  - Hypersensitivity [Unknown]
  - Pruritus [Unknown]
  - Application site mass [Unknown]
  - Application site erythema [Unknown]
